FAERS Safety Report 11090489 (Version 1)
Quarter: 2015Q2

REPORT INFORMATION
  Report Type: Report from Study
  Country: AU (occurrence: AU)
  Receive Date: 20150505
  Receipt Date: 20150505
  Transmission Date: 20150821
  Serious: Yes (Hospitalization)
  Sender: FDA-Public Use
  Company Number: AU-MYLANLABS-2015M1014926

PATIENT

DRUGS (9)
  1. DOXEPIN [Suspect]
     Active Substance: DOXEPIN
     Route: 048
  2. METFORMIN [Suspect]
     Active Substance: METFORMIN HYDROCHLORIDE
     Route: 048
  3. AZATHIOPRINE. [Suspect]
     Active Substance: AZATHIOPRINE
     Route: 048
  4. SERTRALINE [Suspect]
     Active Substance: SERTRALINE HYDROCHLORIDE
     Route: 048
  5. PREDNISONE. [Suspect]
     Active Substance: PREDNISONE
     Route: 048
  6. ASPIRIN                            /00002701/ [Suspect]
     Active Substance: ASPIRIN
     Route: 048
  7. PARACETAMOL [Suspect]
     Active Substance: ACETAMINOPHEN
     Route: 048
  8. ATENOLOL. [Suspect]
     Active Substance: ATENOLOL
     Route: 048
  9. FELODIPINE. [Suspect]
     Active Substance: FELODIPINE
     Route: 048

REACTIONS (2)
  - Bradycardia [Unknown]
  - Intentional overdose [Unknown]
